FAERS Safety Report 9059122 (Version 1)
Quarter: 2013Q1

REPORT INFORMATION
  Report Type: Spontaneous
  Country: US (occurrence: US)
  Receive Date: 20130211
  Receipt Date: 20130211
  Transmission Date: 20140127
  Serious: No
  Sender: FDA-Public Use
  Company Number: US-BRISTOL-MYERS SQUIBB COMPANY-16937682

PATIENT
  Age: 63 Year
  Sex: Male

DRUGS (13)
  1. GLUCOPHAGE [Suspect]
     Indication: DIABETES MELLITUS INADEQUATE CONTROL
     Dosage: DOSE INCREASED:10SEP2012
     Route: 048
  2. LANTUS [Concomitant]
     Dosage: 1DF:15UNITS, QHS
     Dates: start: 20120717
  3. ABILIFY [Concomitant]
  4. CYMBALTA [Concomitant]
  5. PROTONIX [Concomitant]
  6. PROVIGIL [Concomitant]
  7. NORVASC [Concomitant]
  8. SYNTHROID [Concomitant]
  9. DURAGESIC [Concomitant]
  10. PERCOCET [Concomitant]
  11. XANAX [Concomitant]
  12. ZANTAC [Concomitant]
  13. VYTORIN [Concomitant]

REACTIONS (2)
  - Blood glucose increased [Unknown]
  - Diarrhoea [Recovered/Resolved]
